FAERS Safety Report 9943181 (Version 1)
Quarter: 2014Q1

REPORT INFORMATION
  Report Type: Spontaneous
  Country: US (occurrence: US)
  Receive Date: 20140303
  Receipt Date: 20140303
  Transmission Date: 20141002
  Serious: Yes (Hospitalization)
  Sender: FDA-Public Use
  Company Number: US-GLAXOSMITHKLINE-A1063144A

PATIENT
  Age: 60 Year
  Sex: Female

DRUGS (1)
  1. IMITREX [Suspect]
     Indication: MIGRAINE
     Dosage: 50MG UNKNOWN
     Dates: start: 20050712

REACTIONS (3)
  - Knee arthroplasty [Unknown]
  - Transfusion [Unknown]
  - Crohn^s disease [Unknown]
